FAERS Safety Report 11523641 (Version 1)
Quarter: 2015Q3

REPORT INFORMATION
  Report Type: Spontaneous
  Country: US (occurrence: US)
  Receive Date: 20150903
  Receipt Date: 20150903
  Transmission Date: 20151125
  Serious: No
  Sender: FDA-Public Use
  Company Number: US-ELI_LILLY_AND_COMPANY-US201303005974

PATIENT
  Sex: Female

DRUGS (2)
  1. CYMBALTA [Suspect]
     Active Substance: DULOXETINE HYDROCHLORIDE
     Indication: NEURALGIA
     Dosage: 30 MG, QD
     Dates: start: 20130313
  2. NEURONTIN [Concomitant]
     Active Substance: GABAPENTIN
     Dosage: UNK, EACH EVENING

REACTIONS (2)
  - Off label use [Unknown]
  - Somnolence [Unknown]
